FAERS Safety Report 10200850 (Version 2)
Quarter: 2014Q2

REPORT INFORMATION
  Report Type: Other
  Country: IT (occurrence: IT)
  Receive Date: 20140528
  Receipt Date: 20140528
  Transmission Date: 20141212
  Serious: Yes (Hospitalization)
  Sender: FDA-Public Use
  Company Number: IT-SUN PHARMACEUTICAL INDUSTRIES LTD-2014SUN00573

PATIENT
  Sex: 0

DRUGS (8)
  1. OXALIPLATIN [Suspect]
     Indication: RECTAL CANCER
     Dosage: 110 MG, CYCLIC
     Route: 042
     Dates: start: 20140212, end: 20140429
  2. FLUOROURACIL-TEVA [Suspect]
     Indication: RECTAL CANCER
     Dosage: 2000 MG, CYCLIC
     Route: 042
     Dates: start: 20140212, end: 20140429
  3. FLUOROURACIL-TEVA [Suspect]
     Indication: RECTAL CANCER STAGE IV
     Dosage: 650 MG, BOLUS
     Route: 042
     Dates: start: 20140212, end: 20140429
  4. ZOFRAN [Concomitant]
     Indication: PREMEDICATION
     Dosage: 8 MG, UNK
     Route: 042
     Dates: start: 20140212, end: 20140429
  5. CALCIUM LEVOFOLINATE-TEVA [Concomitant]
     Indication: PREMEDICATION
     Dosage: 330 MG, UNK
     Dates: start: 20140212, end: 20140429
  6. DESAMETASONE-HOSPIRA [Concomitant]
     Indication: PREMEDICATION
     Dosage: 8 MG, UNK
     Route: 042
     Dates: start: 20140212, end: 20140429
  7. RANITIDINE-HEXAL [Concomitant]
     Indication: PREMEDICATION
     Dosage: 50 MG, UNK
     Dates: start: 20140212, end: 20140429
  8. TRIMETON [Concomitant]
     Indication: PREMEDICATION
     Dosage: 10 MG, UNK
     Route: 042
     Dates: start: 20140212, end: 20140429

REACTIONS (3)
  - Thrombocytopenic purpura [Unknown]
  - Thrombocytopenia [Unknown]
  - Tremor [Recovered/Resolved]
